FAERS Safety Report 25807603 (Version 1)
Quarter: 2025Q3

REPORT INFORMATION
  Report Type: Spontaneous
  Country: CA (occurrence: CA)
  Receive Date: 20250916
  Receipt Date: 20250916
  Transmission Date: 20251021
  Serious: Yes (Hospitalization, Other)
  Sender: DR REDDYS
  Company Number: CA-RDY-CAN/2025/09/014012

PATIENT
  Age: 81 Year
  Sex: Male

DRUGS (27)
  1. AZACITIDINE [Suspect]
     Active Substance: AZACITIDINE
     Indication: Acute myeloid leukaemia
     Route: 065
  2. AZACITIDINE [Suspect]
     Active Substance: AZACITIDINE
     Route: 065
  3. AZACITIDINE [Suspect]
     Active Substance: AZACITIDINE
     Route: 065
  4. VENETOCLAX [Suspect]
     Active Substance: VENETOCLAX
     Indication: Acute myeloid leukaemia
     Route: 048
  5. VENETOCLAX [Suspect]
     Active Substance: VENETOCLAX
     Route: 048
  6. VENETOCLAX [Suspect]
     Active Substance: VENETOCLAX
     Route: 048
  7. VENETOCLAX [Suspect]
     Active Substance: VENETOCLAX
     Route: 048
  8. VENETOCLAX [Suspect]
     Active Substance: VENETOCLAX
     Route: 048
  9. VENETOCLAX [Suspect]
     Active Substance: VENETOCLAX
     Route: 048
  10. ACETAMINOPHEN [Concomitant]
     Active Substance: ACETAMINOPHEN
     Indication: Pain
     Route: 048
  11. AMOXICILLIN AND CLAVULANATE POTASSIUM [Concomitant]
     Active Substance: AMOXICILLIN\CLAVULANATE POTASSIUM
     Indication: Febrile neutropenia
     Route: 048
  12. ASCORBIC ACID [Concomitant]
     Active Substance: ASCORBIC ACID
     Indication: Vitamin supplementation
     Route: 048
  13. CALCIUM LACTATE [Concomitant]
     Active Substance: CALCIUM LACTATE
     Indication: Routine health maintenance
     Route: 048
  14. CHOLECALCIFEROL [Concomitant]
     Active Substance: CHOLECALCIFEROL
     Indication: Vitamin supplementation
     Route: 048
  15. CYANOCOBALAMIN [Concomitant]
     Active Substance: CYANOCOBALAMIN
     Indication: Vitamin supplementation
     Route: 048
  16. FENOFIBRATE [Concomitant]
     Active Substance: FENOFIBRATE
     Indication: Dyslipidaemia
     Route: 048
  17. LEVOFLOXACIN [Concomitant]
     Active Substance: LEVOFLOXACIN
     Indication: Antibiotic prophylaxis
     Route: 048
  18. ONDANSETRON HYDROCHLORIDE [Concomitant]
     Active Substance: ONDANSETRON HYDROCHLORIDE
     Indication: Nausea
     Route: 048
  19. PIPERACILLIN AND TAZOBACTAM [Concomitant]
     Active Substance: PIPERACILLIN SODIUM\TAZOBACTAM SODIUM
     Indication: Febrile neutropenia
     Dosage: 3.375 MILLIGRAM 1 EVERY 25 DAYS
     Route: 042
  20. PIPERACILLIN AND TAZOBACTAM [Concomitant]
     Active Substance: PIPERACILLIN SODIUM\TAZOBACTAM SODIUM
     Dosage: 4.5 MILLIGRAM 1 EVERY 25 DAYS
     Route: 042
  21. PIPERACILLIN SODIUM\TAZOBACTAM SODIUM [Concomitant]
     Active Substance: PIPERACILLIN SODIUM\TAZOBACTAM SODIUM
     Indication: Febrile neutropenia
     Route: 042
  22. PROCHLORPERAZINE [Concomitant]
     Active Substance: PROCHLORPERAZINE
     Indication: Nausea
     Route: 048
  23. RABEPRAZOLE [Concomitant]
     Active Substance: RABEPRAZOLE
     Indication: Gastrooesophageal reflux disease
     Route: 048
  24. REMDESIVIR [Concomitant]
     Active Substance: REMDESIVIR
     Indication: COVID-19
     Route: 042
  25. ALBUTEROL [Concomitant]
     Active Substance: ALBUTEROL
     Indication: Dyspnoea
     Route: 055
  26. VALACYCLOVIR HYDROCHLORIDE [Concomitant]
     Active Substance: VALACYCLOVIR HYDROCHLORIDE
     Indication: Antiviral prophylaxis
     Route: 048
  27. VANCOMYCIN HYDROCHLORIDE [Concomitant]
     Active Substance: VANCOMYCIN HYDROCHLORIDE
     Indication: Febrile neutropenia

REACTIONS (1)
  - Fungaemia [Recovered/Resolved]
